FAERS Safety Report 7244518-5 (Version None)
Quarter: 2011Q1

REPORT INFORMATION
  Report Type: 
  Country: None (occurrence: None)
  Receive Date: 20110125
  Receipt Date: 20110118
  Transmission Date: 20110831
  Serious: Yes (Other)
  Sender: FDA-Public Use
  Company Number: DE-ELI_LILLY_AND_COMPANY-DE201101004075

PATIENT
  Sex: Female

DRUGS (2)
  1. NOVONORM [Concomitant]
     Dosage: 2 MG, UNK
  2. BYETTA [Suspect]
     Indication: INSULIN-REQUIRING TYPE 2 DIABETES MELLITUS
     Dosage: 10 UG, 2/D
     Route: 058
     Dates: start: 20090101

REACTIONS (5)
  - HYPOGLYCAEMIC UNCONSCIOUSNESS [None]
  - BLOOD GLUCOSE FLUCTUATION [None]
  - NAUSEA [None]
  - TREMOR [None]
  - BLOOD GLUCOSE INCREASED [None]
